FAERS Safety Report 6370909-0 (Version None)
Quarter: 2009Q3

REPORT INFORMATION
  Report Type: 
  Country: None (occurrence: None)
  Receive Date: 20090923
  Receipt Date: 20070627
  Transmission Date: 20100115
  Serious: Yes (Other)
  Sender: FDA-Public Use
  Company Number: US-ASTRAZENECA-2006UW22367

PATIENT
  Age: 46 Year
  Sex: Female
  Weight: 130.6 kg

DRUGS (29)
  1. SEROQUEL [Suspect]
     Indication: SCHIZOPHRENIA
     Route: 048
     Dates: start: 20010101, end: 20030101
  2. SEROQUEL [Suspect]
     Indication: BIPOLAR DISORDER
     Route: 048
     Dates: start: 20010101, end: 20030101
  3. SEROQUEL [Suspect]
     Indication: SLEEP DISORDER
     Route: 048
     Dates: start: 20010101, end: 20030101
  4. SEROQUEL [Suspect]
     Route: 048
     Dates: start: 20030101
  5. SEROQUEL [Suspect]
     Route: 048
     Dates: start: 20030101
  6. SEROQUEL [Suspect]
     Route: 048
     Dates: start: 20030101
  7. SEROQUEL [Suspect]
     Dosage: 25 MG TO 800 MG
     Route: 048
     Dates: start: 20010726
  8. SEROQUEL [Suspect]
     Dosage: 25 MG TO 800 MG
     Route: 048
     Dates: start: 20010726
  9. SEROQUEL [Suspect]
     Dosage: 25 MG TO 800 MG
     Route: 048
     Dates: start: 20010726
  10. HERBAL MEDS AND TEAS [Concomitant]
     Indication: WEIGHT CONTROL
  11. METHADONE [Concomitant]
     Indication: CARPAL TUNNEL SYNDROME
  12. TRILEPTAL [Concomitant]
  13. VISTARIL [Concomitant]
  14. AVALIDE [Concomitant]
  15. AVANDAMET [Concomitant]
  16. SKELAXIN [Concomitant]
  17. ULTRAM [Concomitant]
  18. LIPITOR [Concomitant]
  19. ZANTAC [Concomitant]
  20. PAXIL [Concomitant]
  21. METFORMIN HCL [Concomitant]
  22. TRAZODONE [Concomitant]
  23. CYMBALTA [Concomitant]
  24. OXAPROZIN [Concomitant]
  25. METHYLPREDNISOLONE 4MG TAB [Concomitant]
  26. CIMETIDINE [Concomitant]
  27. XANAX [Concomitant]
  28. PREVACID [Concomitant]
  29. PROZAC [Concomitant]

REACTIONS (4)
  - DIABETES MELLITUS [None]
  - NEUROLEPTIC MALIGNANT SYNDROME [None]
  - PANCREATITIS [None]
  - TARDIVE DYSKINESIA [None]
